FAERS Safety Report 17256277 (Version 1)
Quarter: 2020Q1

REPORT INFORMATION
  Report Type: Spontaneous
  Country: GB (occurrence: GB)
  Receive Date: 20200110
  Receipt Date: 20200110
  Transmission Date: 20200409
  Serious: Yes (Death)
  Sender: FDA-Public Use
  Company Number: GB-TEVA-2020-GB-1165520

PATIENT
  Age: 22 Year
  Sex: Female

DRUGS (8)
  1. AMITRIPTYLINE [Suspect]
     Active Substance: AMITRIPTYLINE
     Dosage: 35 DOSAGE FORMS
     Route: 048
     Dates: start: 20190721, end: 20190721
  2. PHENOXYMETHYLPENICILLIN [Suspect]
     Active Substance: PENICILLIN V
     Dosage: 56 DOSAGE FORMS
     Route: 048
     Dates: start: 20190721, end: 20190721
  3. ZOPICLONE [Suspect]
     Active Substance: ZOPICLONE
     Dosage: 7 DOSAGE FORMS
     Route: 048
     Dates: start: 20190721, end: 20190721
  4. NUROFEN [Suspect]
     Active Substance: IBUPROFEN
     Dosage: 80 DOSAGE FORMS
     Route: 048
     Dates: start: 20190721, end: 20190721
  5. ACETYLSALICYLIC ACID [Suspect]
     Active Substance: ASPIRIN
     Dosage: 400 DOSAGE FORMS
     Route: 048
     Dates: start: 20190721, end: 20190721
  6. MORPHINE [Suspect]
     Active Substance: MORPHINE
     Dosage: 14 DOSAGE FORMS
     Route: 048
     Dates: start: 20190721, end: 20190721
  7. SERTRALINE [Suspect]
     Active Substance: SERTRALINE HYDROCHLORIDE
     Dosage: 70 DOSAGE FORMS
     Route: 048
     Dates: start: 20190721, end: 20190721
  8. LOPERAMIDE [Suspect]
     Active Substance: LOPERAMIDE
     Dosage: 10 DOSAGE FORMS
     Route: 048
     Dates: start: 20190721, end: 20190721

REACTIONS (1)
  - Overdose [Fatal]

NARRATIVE: CASE EVENT DATE: 20190721
